FAERS Safety Report 10234688 (Version 2)
Quarter: 2014Q2

REPORT INFORMATION
  Report Type: Spontaneous
  Country: CA (occurrence: CA)
  Receive Date: 20140613
  Receipt Date: 20140613
  Transmission Date: 20141212
  Serious: Yes (Other)
  Sender: FDA-Public Use
  Company Number: CA-BEH-2013036970

PATIENT
  Age: 82 Year
  Sex: Male

DRUGS (5)
  1. PRIVIGEN [Suspect]
     Route: 042
     Dates: start: 20130527, end: 20130527
  2. PRIVIGEN [Suspect]
     Indication: HERPES ZOSTER
     Route: 042
  3. ANTIBIOTIC [Concomitant]
     Indication: CELLULITIS
     Route: 048
  4. ANTIBIOTIC [Concomitant]
     Indication: CELLULITIS
     Route: 042
  5. TYLENOL [Concomitant]
     Indication: PYREXIA

REACTIONS (17)
  - Sepsis [Unknown]
  - Beta haemolytic streptococcal infection [Unknown]
  - Stomatitis necrotising [Unknown]
  - Febrile nonhaemolytic transfusion reaction [Recovered/Resolved]
  - Body temperature increased [Recovered/Resolved]
  - Hypotension [Recovered/Resolved]
  - Chills [Recovered/Resolved]
  - Vomiting [Recovered/Resolved]
  - Erythema [Unknown]
  - Hypoxia [Unknown]
  - Somnolence [Unknown]
  - Tachypnoea [Recovered/Resolved]
  - Drug administration error [Recovered/Resolved]
  - Infusion site extravasation [Unknown]
  - Incorrect drug administration rate [Recovered/Resolved]
  - Wrong technique in drug usage process [Recovered/Resolved]
  - Haemoglobin decreased [Unknown]
